FAERS Safety Report 5502959-8 (Version None)
Quarter: 2007Q4

REPORT INFORMATION
  Report Type: 
  Country: None (occurrence: None)
  Receive Date: 20071031
  Receipt Date: 20071030
  Transmission Date: 20080405
  Serious: Yes (Hospitalization)
  Sender: FDA-Public Use
  Company Number: D0054583A

PATIENT
  Age: 66 Year
  Sex: Female
  Weight: 65 kg

DRUGS (1)
  1. ARIXTRA [Suspect]
     Route: 058
     Dates: start: 20070910, end: 20070913

REACTIONS (6)
  - EXCORIATION [None]
  - GASTRIC HAEMORRHAGE [None]
  - HAEMORRHAGE [None]
  - MELAENA [None]
  - RENAL FAILURE [None]
  - URINARY TRACT INFECTION [None]
